FAERS Safety Report 6627702-0 (Version None)
Quarter: 2010Q1

REPORT INFORMATION
  Report Type: 
  Country: None (occurrence: None)
  Receive Date: 20100311
  Receipt Date: 20100303
  Transmission Date: 20100710
  Serious: Yes (Other)
  Sender: FDA-Public Use
  Company Number: FR-BRISTOL-MYERS SQUIBB COMPANY-15001860

PATIENT
  Age: 48 Year
  Sex: Female

DRUGS (2)
  1. ORENCIA [Suspect]
     Indication: RHEUMATOID ARTHRITIS
     Dosage: INTERRUPTED ON FEBRUARY 2010
     Dates: start: 20080910
  2. CORTICOSTEROID [Concomitant]
     Dosage: CORTICOSTEROID DRUG

REACTIONS (1)
  - PARKINSONISM [None]
